FAERS Safety Report 16275759 (Version 1)
Quarter: 2019Q2

REPORT INFORMATION
  Report Type: Report from Study
  Country: JM (occurrence: JM)
  Receive Date: 20190504
  Receipt Date: 20190504
  Transmission Date: 20190711
  Serious: Yes (Death, Other)
  Sender: FDA-Public Use
  Company Number: PHHY2019JM101739

PATIENT
  Age: 38 Year
  Sex: Male

DRUGS (1)
  1. GLIVEC [Suspect]
     Active Substance: IMATINIB MESYLATE
     Indication: CHRONIC MYELOID LEUKAEMIA
     Dosage: 6 DF, UNK
     Route: 065

REACTIONS (2)
  - Death [Fatal]
  - Transformation to acute myeloid leukaemia [Unknown]

NARRATIVE: CASE EVENT DATE: 20190427
